FAERS Safety Report 7797451-4 (Version None)
Quarter: 2011Q4

REPORT INFORMATION
  Report Type: 
  Country: None (occurrence: None)
  Receive Date: 20111003
  Receipt Date: 20110919
  Transmission Date: 20120403
  Serious: Yes (Hospitalization, Other)
  Sender: FDA-Public Use
  Company Number: 2011AP001988

PATIENT
  Age: 22 Year
  Sex: Female

DRUGS (2)
  1. RISPERIDONE [Suspect]
     Indication: BIPOLAR DISORDER
     Dosage: 1 MG; QD;
  2. SERTRALINE HYDROCHLORIDE [Concomitant]

REACTIONS (5)
  - NAUSEA [None]
  - WEIGHT INCREASED [None]
  - VITH NERVE PARALYSIS [None]
  - VISION BLURRED [None]
  - BENIGN INTRACRANIAL HYPERTENSION [None]
